FAERS Safety Report 7111141-2 (Version None)
Quarter: 2010Q4

REPORT INFORMATION
  Report Type: 
  Country: None (occurrence: None)
  Receive Date: 20101118
  Receipt Date: 20101109
  Transmission Date: 20110411
  Serious: Yes (Other)
  Sender: FDA-Public Use
  Company Number: US-MYLANLABS-2010S1007805

PATIENT
  Age: 16 Year
  Sex: Female

DRUGS (4)
  1. CLARAVIS [Suspect]
     Route: 048
     Dates: start: 20100129
  2. AMNESTEEM [Suspect]
     Route: 048
     Dates: end: 20100412
  3. PRENATAL VITAMINS [Concomitant]
     Indication: PREGNANCY
     Dates: start: 20100101
  4. FOLIC ACID [Concomitant]
     Indication: PREGNANCY
     Dates: start: 20100101

REACTIONS (1)
  - DRUG EXPOSURE DURING PREGNANCY [None]
